FAERS Safety Report 7004699-5 (Version None)
Quarter: 2010Q3

REPORT INFORMATION
  Report Type: 
  Country: None (occurrence: None)
  Receive Date: 20100921
  Receipt Date: 20100910
  Transmission Date: 20110219
  Serious: Yes (Other)
  Sender: FDA-Public Use
  Company Number: PHHY2010US60074

PATIENT
  Age: 70 Year
  Sex: Female
  Weight: 128 kg

DRUGS (5)
  1. ENABLEX [Suspect]
     Indication: URGE INCONTINENCE
     Dosage: UNK, ONCE A DAY
     Route: 048
  2. CRESTOR [Concomitant]
  3. ZETIA [Concomitant]
  4. NIACIN [Concomitant]
  5. FOSAMAX [Concomitant]

REACTIONS (3)
  - DISORIENTATION [None]
  - HALLUCINATION [None]
  - NAUSEA [None]
